FAERS Safety Report 16987140 (Version 2)
Quarter: 2021Q4

REPORT INFORMATION
  Report Type: Spontaneous
  Country: GB (occurrence: GB)
  Receive Date: 20191102
  Receipt Date: 20211112
  Transmission Date: 20220303
  Serious: Yes (Other)
  Sender: FDA-Public Use
  Company Number: None

PATIENT
  Age: 3 Year
  Sex: Female

DRUGS (5)
  1. MONTELUKAST [Suspect]
     Active Substance: MONTELUKAST SODIUM
     Indication: Asthma
     Dates: start: 20181122, end: 20181129
  2. BECLOMETHASONE DIPROPIONATE [Concomitant]
     Active Substance: BECLOMETHASONE DIPROPIONATE
  3. SERETIDE [Concomitant]
     Active Substance: FLUTICASONE PROPIONATE\SALMETEROL XINAFOATE
  4. ATROVENT [Concomitant]
     Active Substance: IPRATROPIUM BROMIDE
  5. VENTOLIN [Concomitant]
     Active Substance: ALBUTEROL SULFATE

REACTIONS (14)
  - Depression [Recovered/Resolved]
  - Separation anxiety disorder [Recovering/Resolving]
  - Insomnia [Not Recovered/Not Resolved]
  - Anger [Recovered/Resolved with Sequelae]
  - Intentional self-injury [Unknown]
  - Abnormal behaviour [Recovered/Resolved with Sequelae]
  - Anxiety [Not Recovered/Not Resolved]
  - Bipolar disorder [Unknown]
  - Diarrhoea haemorrhagic [Recovered/Resolved]
  - Nightmare [Unknown]
  - Hallucination, visual [Unknown]
  - Aggression [Recovered/Resolved]
  - Psychomotor hyperactivity [Unknown]
  - Mood swings [Recovered/Resolved with Sequelae]
